FAERS Safety Report 18722799 (Version 1)
Quarter: 2021Q1

REPORT INFORMATION
  Report Type: Spontaneous
  Country: ES (occurrence: ES)
  Receive Date: 20210111
  Receipt Date: 20210111
  Transmission Date: 20210419
  Serious: Yes (Other)
  Sender: FDA-Public Use
  Company Number: ES-AMGEN-ESPSP2021001335

PATIENT
  Sex: Male

DRUGS (2)
  1. CEMIDON B6 [Suspect]
     Active Substance: ISONIAZID\PYRIDOXINE HYDROCHLORIDE
     Indication: MYCOBACTERIUM TUBERCULOSIS COMPLEX TEST POSITIVE
     Dosage: 300 B6, 30 TABLETS
     Route: 048
     Dates: start: 20201106, end: 20201108
  2. OTEZLA [Suspect]
     Active Substance: APREMILAST
     Indication: PSORIASIS
     Dosage: INDUCTION (10 MG. 20 MG, 30 MG FILM COATED TABLETS, 27 TABLETS)
     Route: 048
     Dates: start: 20201105, end: 20201108

REACTIONS (2)
  - Pruritus [Recovering/Resolving]
  - Behaviour disorder [Recovered/Resolved]

NARRATIVE: CASE EVENT DATE: 20201107
